FAERS Safety Report 9219973 (Version 2)
Quarter: 2013Q2

REPORT INFORMATION
  Report Type: Report from Study
  Country: KP (occurrence: KP)
  Receive Date: 20130409
  Receipt Date: 20130620
  Transmission Date: 20140414
  Serious: Yes (Other)
  Sender: FDA-Public Use
  Company Number: KP-ROCHE-1210392

PATIENT
  Age: 47 Year
  Sex: Male

DRUGS (2)
  1. ACTILYSE [Suspect]
     Indication: ISCHAEMIC STROKE
     Dosage: FULL DOSE, 0.9 M/KG AS A 10% LOADING BOLUS INJECTION FOLLOWED BY A CONTINUOUS INFUSION OVER 60 MINUT
     Route: 042
  2. UROKINASE [Suspect]
     Indication: ISCHAEMIC STROKE
     Route: 013

REACTIONS (1)
  - Reocclusion [Recovered/Resolved]
